FAERS Safety Report 13711144 (Version 1)
Quarter: 2017Q3

REPORT INFORMATION
  Report Type: Spontaneous
  Country: US (occurrence: US)
  Receive Date: 20170703
  Receipt Date: 20170703
  Transmission Date: 20171127
  Serious: Yes (Life-Threatening, Other)
  Sender: FDA-Public Use
  Company Number: None

PATIENT
  Age: 66 Year
  Sex: Female
  Weight: 90.72 kg

DRUGS (15)
  1. VITAMIN D [Concomitant]
     Active Substance: CHOLECALCIFEROL
  2. HCTZ-HYDROCHLOROTHIAZIDE [Concomitant]
  3. IRON [Concomitant]
     Active Substance: IRON
  4. KCL [Concomitant]
     Active Substance: POTASSIUM CHLORIDE
  5. ALBUTEROL. [Concomitant]
     Active Substance: ALBUTEROL
  6. MAGNESIUM [Concomitant]
     Active Substance: MAGNESIUM
  7. CALCIUM WITH MG [Concomitant]
  8. ZINC. [Concomitant]
     Active Substance: ZINC
  9. CA [Concomitant]
  10. MULTIVIT CENTRUM SILVER [Concomitant]
  11. OMEPRAZOLE. [Suspect]
     Active Substance: OMEPRAZOLE
     Indication: GASTROOESOPHAGEAL REFLUX DISEASE
     Dosage: FIRST STARTED TAKING 3-19-93 ON + OFF OTHER DRUGS??20MG ONE PILL ONCE A DAY PO INCREASED TO BID - TRIED CHANGING BEFORE MEALS + HS
     Dates: start: 20151228, end: 20160318
  12. COQ10 [Concomitant]
     Active Substance: UBIDECARENONE
  13. LORADIDINE [Concomitant]
  14. VITAMIN D3 [Concomitant]
     Active Substance: CHOLECALCIFEROL
  15. M VIT [Concomitant]

REACTIONS (5)
  - Syncope [None]
  - Pneumonia [None]
  - Heart rate irregular [None]
  - Malaise [None]
  - Asthenia [None]

NARRATIVE: CASE EVENT DATE: 20120112
